FAERS Safety Report 13027105 (Version 1)
Quarter: 2016Q4

REPORT INFORMATION
  Report Type: Report from Study
  Country: US (occurrence: US)
  Receive Date: 20161214
  Receipt Date: 20161214
  Transmission Date: 20170207
  Serious: Yes (Hospitalization, Other)
  Sender: FDA-Public Use
  Company Number: US-GILEAD-2016-0248283

PATIENT
  Age: 87 Year
  Sex: Female

DRUGS (2)
  1. AMBRISENTAN [Suspect]
     Active Substance: AMBRISENTAN
     Indication: PRODUCT USED FOR UNKNOWN INDICATION
     Dosage: 5 MG, UNK
     Route: 065
     Dates: start: 20150824
  2. OXYGEN. [Concomitant]
     Active Substance: OXYGEN

REACTIONS (5)
  - Respiratory failure [Unknown]
  - Pericardial effusion [Unknown]
  - Pneumonia [Unknown]
  - Cardiac failure [Unknown]
  - Unevaluable event [Unknown]
